FAERS Safety Report 4395386-0 (Version None)
Quarter: 2004Q3

REPORT INFORMATION
  Report Type: 
  Country: None (occurrence: None)
  Receive Date: 20040712
  Receipt Date: 20040712
  Transmission Date: 20050211
  Serious: Yes (Life-Threatening, Hospitalization)
  Sender: FDA-Public Use
  Company Number: None

PATIENT
  Sex: Female
  Weight: 54.8852 kg

DRUGS (1)
  1. TAXOL [Suspect]

REACTIONS (6)
  - CARDIAC ARREST [None]
  - COMPLICATION OF DEVICE REMOVAL [None]
  - DEVICE FAILURE [None]
  - FOREIGN BODY TRAUMA [None]
  - MEDICAL DEVICE COMPLICATION [None]
  - MYOCARDIAL INFARCTION [None]
